FAERS Safety Report 17711539 (Version 1)
Quarter: 2020Q2

REPORT INFORMATION
  Report Type: Spontaneous
  Country: US (occurrence: US)
  Receive Date: 20200425
  Receipt Date: 20200425
  Transmission Date: 20200714
  Serious: Yes (Disabling, Other)
  Sender: FDA-Public Use
  Company Number: None

PATIENT
  Age: 46 Year
  Sex: Female
  Weight: 45 kg

DRUGS (5)
  1. ADVIL [Concomitant]
     Active Substance: IBUPROFEN
  2. CORTISONE [Suspect]
     Active Substance: CORTISONE
  3. ATIVAN [Concomitant]
     Active Substance: LORAZEPAM
  4. CLOBETASOL [Suspect]
     Active Substance: CLOBETASOL
     Indication: ECZEMA
     Route: 061
  5. QUADRIDERM NF [Suspect]
     Active Substance: BETAMETHASONE DIPROPIONATE\CLOTRIMAZOLE\GENTAMICIN SULFATE

REACTIONS (1)
  - Incorrect product administration duration [None]

NARRATIVE: CASE EVENT DATE: 20180823
